FAERS Safety Report 18327544 (Version 1)
Quarter: 2020Q3

REPORT INFORMATION
  Report Type: Spontaneous
  Country: DE (occurrence: DE)
  Receive Date: 20200929
  Receipt Date: 20200929
  Transmission Date: 20201103
  Serious: Yes (Hospitalization)
  Sender: FDA-Public Use
  Company Number: DE-JNJFOC-20200941999

PATIENT
  Age: 80 Year
  Sex: Female

DRUGS (10)
  1. XARELTO [Suspect]
     Active Substance: RIVAROXABAN
     Indication: PRODUCT USED FOR UNKNOWN INDICATION
     Dosage: 20 MG, 1?0?0?0, TABLETTEN
     Route: 048
  2. PANTOPRAZOL [PANTOPRAZOLE] [Concomitant]
     Active Substance: PANTOPRAZOLE
     Dosage: 40 MG, 1?0?0?0, TABLETTEN
     Route: 048
  3. LEVOTHYROXINE SODIUM. [Concomitant]
     Active Substance: LEVOTHYROXINE SODIUM
     Dosage: 0.05 MG, OM
     Route: 048
  4. VITAMIN D [COLECALCIFEROL] [Concomitant]
     Active Substance: CHOLECALCIFEROL
     Dosage: 1000 IU, OM
     Route: 048
  5. LAMOTRIGIN [Concomitant]
     Active Substance: LAMOTRIGINE
     Dosage: 25 MG, OM
  6. MIRTAZAPIN [Concomitant]
     Active Substance: MIRTAZAPINE
     Dosage: 30 MG, 0.5?0?1?0, TABLETTEN
     Route: 048
  7. DULOXETINE. [Concomitant]
     Active Substance: DULOXETINE
     Dosage: 60 MG, OM
     Route: 048
  8. TORASEMID [Concomitant]
     Active Substance: TORSEMIDE
     Dosage: 5 MG, OM
     Route: 048
  9. LAMOTRIGIN [Concomitant]
     Active Substance: LAMOTRIGINE
     Dosage: 50 MG, OM
     Route: 048
  10. GABAPENTIN. [Concomitant]
     Active Substance: GABAPENTIN
     Dosage: 600 MG, TID
     Route: 048

REACTIONS (6)
  - Pallor [Unknown]
  - General physical health deterioration [Unknown]
  - Dyspnoea [Unknown]
  - Anaemia [Unknown]
  - Haematochezia [Unknown]
  - Fatigue [Unknown]
